FAERS Safety Report 17978709 (Version 3)
Quarter: 2021Q1

REPORT INFORMATION
  Report Type: Spontaneous
  Country: US (occurrence: US)
  Receive Date: 20200703
  Receipt Date: 20210210
  Transmission Date: 20210419
  Serious: Yes (Other)
  Sender: FDA-Public Use
  Company Number: US-PFIZER INC-2020254720

PATIENT
  Age: 68 Year

DRUGS (1)
  1. ESTRING [Suspect]
     Active Substance: ESTRADIOL
     Dosage: UNK, EVERY THREE MONTHS

REACTIONS (3)
  - Contraindicated product administered [Unknown]
  - Cataract [Unknown]
  - Circumstance or information capable of leading to medication error [Unknown]
